FAERS Safety Report 6580346-1 (Version None)
Quarter: 2010Q1

REPORT INFORMATION
  Report Type: 
  Country: None (occurrence: None)
  Receive Date: 20100212
  Receipt Date: 20100201
  Transmission Date: 20100710
  Serious: Yes (Other)
  Sender: FDA-Public Use
  Company Number: PHEH2010US02130

PATIENT
  Age: 69 Year
  Sex: Female

DRUGS (3)
  1. TEKTURNA [Suspect]
     Indication: HYPERTENSION
     Dosage: UNK
     Route: 048
     Dates: start: 20091201, end: 20091201
  2. DIOVAN [Concomitant]
     Dosage: UNK, UNK
     Route: 066
  3. HYDROCHLOROTHIAZIDE [Concomitant]
     Dosage: UNK, UNK
     Route: 065

REACTIONS (6)
  - BLOOD CREATININE INCREASED [None]
  - BLOOD POTASSIUM INCREASED [None]
  - DRUG INEFFECTIVE [None]
  - GLOMERULAR FILTRATION RATE DECREASED [None]
  - PROTEIN URINE PRESENT [None]
  - PROTEINURIA [None]
